FAERS Safety Report 12295324 (Version 1)
Quarter: 2016Q2

REPORT INFORMATION
  Report Type: Spontaneous
  Country: US (occurrence: US)
  Receive Date: 20160422
  Receipt Date: 20160422
  Transmission Date: 20160815
  Serious: No
  Sender: FDA-Public Use
  Company Number: US-009507513-1604USA010917

PATIENT
  Age: 17 Year
  Sex: Female
  Weight: 60.77 kg

DRUGS (1)
  1. NEXPLANON [Suspect]
     Active Substance: ETONOGESTREL
     Indication: CONTRACEPTION
     Dosage: 68 MG, EVERY 3 YEARS
     Route: 059
     Dates: start: 20140728, end: 20160412

REACTIONS (3)
  - Implant site pain [Recovering/Resolving]
  - Device breakage [Recovered/Resolved]
  - Product quality issue [Unknown]

NARRATIVE: CASE EVENT DATE: 20160412
